FAERS Safety Report 8539519-0 (Version None)
Quarter: 2012Q3

REPORT INFORMATION
  Report Type: 
  Country: None (occurrence: None)
  Receive Date: 20120726
  Receipt Date: 20120712
  Transmission Date: 20120928
  Serious: Yes (Hospitalization, Other)
  Sender: FDA-Public Use
  Company Number: US-COVIDIEN/TYCO HEALTHCARE/MALLINCKRODT-T201202426

PATIENT
  Sex: Female
  Weight: 118.82 kg

DRUGS (19)
  1. OPTIMARK [Suspect]
     Indication: NUCLEAR MAGNETIC RESONANCE IMAGING BRAIN
     Dosage: 15 ML, SINGLE
     Route: 042
     Dates: start: 20050831, end: 20050831
  2. NEPHRO-VITE                        /01801401/ [Concomitant]
     Dosage: ONE TAB, QD
  3. GUAIFENESIN DM [Concomitant]
     Dosage: UNK, PRN
  4. DIOVAN [Concomitant]
     Dosage: 160 MG, BID
  5. RENAGEL [Concomitant]
     Dosage: TWO - 800 MG, TID
  6. LORAZEPAM [Concomitant]
     Dosage: 1 MG/0.5 ML, PRN
  7. GADOLINIUM [Suspect]
     Indication: ANGIOGRAM
     Dosage: UNK, SINGLE
     Route: 042
     Dates: start: 20040206, end: 20040206
  8. ACCUPRIL [Concomitant]
     Dosage: 40 MG, BID
  9. AZITHROMYCIN [Concomitant]
     Dosage: 500 MG, UNK
  10. TYLENOL WITH CODEIN #3 [Concomitant]
     Dosage: 2-325 MG, PRN
  11. PROPOXYPHENE HCL [Concomitant]
     Dosage: 100/650 MG, PRN
  12. ZOSYN [Concomitant]
     Dosage: 50 MG, Q 8 HOURS
     Route: 042
  13. ALBUTEROL [Concomitant]
     Dosage: UNK
  14. ATENOLOL [Concomitant]
     Dosage: 50 MG, QD
  15. EPOGEN [Concomitant]
     Indication: ANAEMIA
     Dosage: UNK
     Dates: start: 20020822
  16. CALCITRIOL [Concomitant]
  17. LASIX [Concomitant]
     Dosage: 80MG/8ML, Q 12 HOURS
     Route: 042
  18. ATROVENT [Concomitant]
     Dosage: UNK
  19. HYDRALAZINE HCL [Concomitant]
     Dosage: 25 MG, Q 4 HOURS, PRN

REACTIONS (71)
  - AZOTAEMIA [None]
  - SEPTIC ENCEPHALOPATHY [None]
  - DYSPNOEA [None]
  - IRON DEFICIENCY ANAEMIA [None]
  - LYMPHADENOPATHY [None]
  - NEUROPATHY PERIPHERAL [None]
  - SEPSIS [None]
  - COAGULOPATHY [None]
  - PNEUMONIA BACTERIAL [None]
  - RESPIRATORY DISTRESS [None]
  - TRACHEOBRONCHITIS [None]
  - HYPERTENSIVE HEART DISEASE [None]
  - PERICARDITIS [None]
  - SUPERIOR VENA CAVA SYNDROME [None]
  - HYPOTHYROIDISM [None]
  - GASTRITIS [None]
  - ABSCESS LIMB [None]
  - DIVERTICULUM INTESTINAL HAEMORRHAGIC [None]
  - ASTHMA [None]
  - WHEEZING [None]
  - DYSLIPIDAEMIA [None]
  - BREAST CALCIFICATIONS [None]
  - ATRIAL FIBRILLATION [None]
  - EROSIVE OESOPHAGITIS [None]
  - MIGRAINE [None]
  - CARPAL TUNNEL SYNDROME [None]
  - ELECTROCARDIOGRAM T WAVE ABNORMAL [None]
  - FALL [None]
  - PAIN IN EXTREMITY [None]
  - HYPOTENSION [None]
  - HYPERTENSION [None]
  - DEEP VEIN THROMBOSIS [None]
  - HAEMOPTYSIS [None]
  - COLON ADENOMA [None]
  - PLEURITIC PAIN [None]
  - SINUS DISORDER [None]
  - HYPERPHOSPHATAEMIA [None]
  - PAIN [None]
  - NODULE [None]
  - DIARRHOEA [None]
  - NEPHROGENIC SYSTEMIC FIBROSIS [None]
  - PULMONARY EMBOLISM [None]
  - GRAFT INFECTION [None]
  - DECUBITUS ULCER [None]
  - JUGULAR VEIN THROMBOSIS [None]
  - SYSTEMIC SCLEROSIS [None]
  - GASTROOESOPHAGEAL REFLUX DISEASE [None]
  - UPPER RESPIRATORY TRACT INFECTION [None]
  - BLOOD BILIRUBIN DECREASED [None]
  - HAEMORRHOIDS [None]
  - HYPOKALAEMIA [None]
  - PERICARDIAL RUB [None]
  - TACHYCARDIA [None]
  - MYALGIA [None]
  - HYPERPARATHYROIDISM [None]
  - CARDIAC FAILURE ACUTE [None]
  - GASTROENTERITIS [None]
  - DUODENITIS [None]
  - DERMATITIS [None]
  - ELECTROCARDIOGRAM QT PROLONGED [None]
  - INSOMNIA [None]
  - PROTEIN C DEFICIENCY [None]
  - PULMONARY OEDEMA [None]
  - RENAL FAILURE CHRONIC [None]
  - DRUG INTERACTION [None]
  - BRONCHOPNEUMONIA [None]
  - GRAFT THROMBOSIS [None]
  - FLUID OVERLOAD [None]
  - SYNCOPE [None]
  - GENE MUTATION IDENTIFICATION TEST POSITIVE [None]
  - OEDEMA PERIPHERAL [None]
